FAERS Safety Report 6081708-1 (Version None)
Quarter: 2009Q1

REPORT INFORMATION
  Report Type: 
  Country: None (occurrence: None)
  Receive Date: 20090218
  Receipt Date: 20090210
  Transmission Date: 20090719
  Serious: Yes (Death)
  Sender: FDA-Public Use
  Company Number: TR-WYE-H08150509

PATIENT
  Sex: Female
  Weight: 80 kg

DRUGS (11)
  1. TYGACIL [Suspect]
     Indication: ABDOMINAL SEPSIS
     Dosage: 100 MG LOADING DOSE FOLLOWED BY 50 MG TWICE DAILY
     Route: 042
     Dates: start: 20090203, end: 20090210
  2. NETILMICIN SULFATE [Concomitant]
     Indication: SEPSIS
     Dosage: 1 X 400
     Route: 042
  3. METOCLOPRAMIDE [Suspect]
     Dosage: 3X1
     Route: 048
  4. ULCERAN [Suspect]
     Indication: PROPHYLAXIS
     Dosage: 3 X 1
     Route: 048
  5. BUDESONIDE [Concomitant]
     Dosage: 2X1
     Route: 055
  6. HEPARIN-FRACTION, SODIUM SALT [Suspect]
     Indication: PROPHYLAXIS
     Dosage: 2X0.6
     Route: 058
  7. PHENYTOIN SODIUM [Suspect]
     Indication: PROPHYLAXIS
     Dosage: 3X1
     Route: 048
  8. LACTULOSE [Concomitant]
     Indication: CONSTIPATION
     Dosage: 3X2
     Route: 048
  9. VENTOLIN [Suspect]
     Dosage: 4X1
     Route: 055
  10. FLUCONAZOLE [Concomitant]
     Indication: EVIDENCE BASED TREATMENT
     Dosage: 2 X 200
     Route: 042
  11. ACETYLCYSTEINE [Concomitant]
     Dosage: 3X1
     Route: 048

REACTIONS (3)
  - ANAPHYLACTIC SHOCK [None]
  - CARDIAC ARREST [None]
  - GENERALISED OEDEMA [None]
